FAERS Safety Report 24392178 (Version 1)
Quarter: 2024Q4

REPORT INFORMATION
  Report Type: Report from Study
  Country: AT (occurrence: AT)
  Receive Date: 20241003
  Receipt Date: 20241003
  Transmission Date: 20250114
  Serious: Yes (Hospitalization)
  Sender: ABBVIE
  Company Number: AT-ABBVIE-5943279

PATIENT
  Age: 26 Year
  Sex: Female

DRUGS (4)
  1. HUMIRA [Suspect]
     Active Substance: ADALIMUMAB
     Indication: Ankylosing spondylitis
     Route: 058
     Dates: start: 2018
  2. HUMIRA [Suspect]
     Active Substance: ADALIMUMAB
     Route: 058
     Dates: start: 2023
  3. Novalgin [Concomitant]
     Indication: Pain
     Dosage: FREQUENCY TEXT: AS REQUIRED
  4. MEFENAMIC ACID [Concomitant]
     Active Substance: MEFENAMIC ACID
     Indication: Pain
     Dosage: FREQUENCY TEXT: AS REQUIRED

REACTIONS (3)
  - Gait disturbance [Recovering/Resolving]
  - Pain [Recovered/Resolved]
  - Intraocular pressure increased [Recovering/Resolving]

NARRATIVE: CASE EVENT DATE: 20190101
